FAERS Safety Report 6297266-2 (Version None)
Quarter: 2009Q3

REPORT INFORMATION
  Report Type: 
  Country: None (occurrence: None)
  Receive Date: 20090805
  Receipt Date: 20070518
  Transmission Date: 20100115
  Serious: Yes (Hospitalization, Other)
  Sender: FDA-Public Use
  Company Number: US-ASTRAZENECA-2006UW04346

PATIENT
  Age: 51 Year
  Sex: Male
  Weight: 138.3 kg

DRUGS (31)
  1. SEROQUEL [Suspect]
     Indication: ANXIETY
     Dosage: 500-600 MG
     Route: 048
     Dates: start: 19970101
  2. SEROQUEL [Suspect]
     Indication: PARANOIA
     Dosage: 500-600 MG
     Route: 048
     Dates: start: 19970101
  3. SEROQUEL [Suspect]
     Indication: DELUSION
     Dosage: 500-600 MG
     Route: 048
     Dates: start: 19970101
  4. SEROQUEL [Suspect]
     Route: 048
     Dates: start: 19990217
  5. SEROQUEL [Suspect]
     Route: 048
     Dates: start: 19990217
  6. SEROQUEL [Suspect]
     Route: 048
     Dates: start: 19990217
  7. SEROQUEL [Suspect]
     Dosage: 100 MG THREE AND HALF TABLETS AT NIGHT
     Route: 048
     Dates: start: 20010621
  8. SEROQUEL [Suspect]
     Dosage: 100 MG THREE AND HALF TABLETS AT NIGHT
     Route: 048
     Dates: start: 20010621
  9. SEROQUEL [Suspect]
     Dosage: 100 MG THREE AND HALF TABLETS AT NIGHT
     Route: 048
     Dates: start: 20010621
  10. SEROQUEL [Suspect]
     Dosage: 100 MG-600 MG
     Route: 048
     Dates: start: 20040120
  11. SEROQUEL [Suspect]
     Dosage: 100 MG-600 MG
     Route: 048
     Dates: start: 20040120
  12. SEROQUEL [Suspect]
     Dosage: 100 MG-600 MG
     Route: 048
     Dates: start: 20040120
  13. SEROQUEL [Suspect]
     Route: 048
     Dates: start: 20070112
  14. SEROQUEL [Suspect]
     Route: 048
     Dates: start: 20070112
  15. SEROQUEL [Suspect]
     Route: 048
     Dates: start: 20070112
  16. RISPERDAL [Concomitant]
  17. ZYPREXA [Concomitant]
     Dates: start: 19960101, end: 19970101
  18. WELLBUTRIN [Concomitant]
  19. DEPAKOTE [Concomitant]
     Dosage: 500 MG-1500 MG
     Route: 048
     Dates: start: 19970513
  20. EFFEXOR [Concomitant]
     Route: 048
     Dates: start: 19970513
  21. BUSPAR [Concomitant]
     Dosage: 15 MG-100 MG
     Route: 048
     Dates: start: 19990217
  22. LIPITOR [Concomitant]
     Dosage: 40 MG-80 MG
     Dates: start: 19990324
  23. GLYBURIDE [Concomitant]
     Dosage: 5 MG-20 MG
     Dates: start: 19990217
  24. METFORMIN [Concomitant]
     Dosage: 500 MG-2000 MG
     Route: 048
     Dates: start: 20040120
  25. LOPRESSOR [Concomitant]
     Dates: start: 19990324
  26. SYNTHROID [Concomitant]
     Dosage: 0.5 MG-1 MG
     Dates: start: 20010621
  27. AVANDIA [Concomitant]
     Dates: start: 20021207
  28. ASPIRIN [Concomitant]
     Dates: start: 20010621
  29. LANTUS [Concomitant]
     Dosage: 10 UNITS-80 UNITS
     Dates: start: 20041117
  30. ATENOLOL [Concomitant]
     Route: 048
     Dates: start: 20040120
  31. HYDROCHLOROTHIAZIDE [Concomitant]
     Dosage: 12.5 MG-25 MG
     Dates: start: 20040120

REACTIONS (7)
  - ANKLE FRACTURE [None]
  - DIABETES MELLITUS [None]
  - DIABETES MELLITUS INADEQUATE CONTROL [None]
  - DIZZINESS [None]
  - FRACTURE [None]
  - INSULIN-REQUIRING TYPE 2 DIABETES MELLITUS [None]
  - TARDIVE DYSKINESIA [None]
